FAERS Safety Report 4340089-1 (Version None)
Quarter: 2004Q2

REPORT INFORMATION
  Report Type: 
  Country: None (occurrence: None)
  Receive Date: 20040415
  Receipt Date: 20040415
  Transmission Date: 20050107
  Serious: Yes (Life-Threatening, Hospitalization)
  Sender: FDA-Public Use
  Company Number: None

PATIENT

DRUGS (2)
  1. AMOXICILLIN [Suspect]
     Indication: EAR INFECTION
  2. AUGMENTIN [Suspect]
     Indication: EAR INFECTION

REACTIONS (3)
  - BRAIN DAMAGE [None]
  - DRUG INEFFECTIVE [None]
  - EAR DISORDER [None]
